FAERS Safety Report 7822600-9 (Version None)
Quarter: 2011Q4

REPORT INFORMATION
  Report Type: 
  Country: None (occurrence: None)
  Receive Date: 20111018
  Receipt Date: 20110930
  Transmission Date: 20120403
  Serious: Yes (Other)
  Sender: FDA-Public Use
  Company Number: PHEH2011US06853

PATIENT
  Sex: Female
  Weight: 30.7 kg

DRUGS (2)
  1. EXJADE [Suspect]
     Indication: SICKLE CELL ANAEMIA
     Dosage: 750 MG, DAILY
     Route: 048
     Dates: start: 20091101
  2. EXJADE [Suspect]
     Dosage: 750 MG, DAILY
     Route: 048

REACTIONS (1)
  - HAEMORRHOIDS [None]
